FAERS Safety Report 6472954-3 (Version None)
Quarter: 2009Q4

REPORT INFORMATION
  Report Type: 
  Country: None (occurrence: None)
  Receive Date: 20091204
  Receipt Date: 20090805
  Transmission Date: 20100525
  Serious: Yes (Other)
  Sender: FDA-Public Use
  Company Number: US-RANBAXY-2009US-26105

PATIENT

DRUGS (2)
  1. ATENOLOL [Suspect]
     Indication: BLOOD PRESSURE
     Dosage: 25 MG, QD
     Route: 048
  2. ATENOLOL [Suspect]
     Dosage: 25 MG, BID
     Route: 048

REACTIONS (3)
  - BLOOD PRESSURE ABNORMAL [None]
  - FLUSHING [None]
  - ROTATOR CUFF REPAIR [None]
